FAERS Safety Report 9675854 (Version 1)
Quarter: 2013Q4

REPORT INFORMATION
  Report Type: Report from Study
  Country: US (occurrence: US)
  Receive Date: 20131107
  Receipt Date: 20131107
  Transmission Date: 20140711
  Serious: Yes (Hospitalization)
  Sender: FDA-Public Use
  Company Number: US-009507513-1311USA001401

PATIENT
  Sex: Female

DRUGS (14)
  1. TEMODAR [Suspect]
     Indication: GLIOBLASTOMA
     Dosage: 200 MG/M2, 263 MG DAILY FOR 5 DAYS
     Route: 048
     Dates: end: 20130618
  2. TEMODAR [Suspect]
     Dosage: 200 MG/M2 FOR DAILY FOR 5 DAYS EVERY 28 HOURS ( 1 IN 1 D)
     Route: 048
     Dates: start: 20130718, end: 20130923
  3. BEVACIZUMAB [Suspect]
     Indication: GLIOBLASTOMA
     Dosage: UNK
     Route: 042
     Dates: start: 20130618
  4. BEVACIZUMAB [Suspect]
     Dosage: 700 MG, 1 IN 2 WK
     Route: 042
     Dates: start: 20130509, end: 20131003
  5. LORAZEPAM [Concomitant]
  6. ACETAMINOPHEN (+) CODEINE PHOSPHATE [Concomitant]
  7. NORETHINDRONE [Concomitant]
  8. LEVETIRACETAM [Concomitant]
  9. MELATONIN [Concomitant]
  10. ONDANSETRON [Concomitant]
  11. ACETAMINOPHEN [Concomitant]
  12. ACETAMINOPHEN (+) DIPHENHYDRAMINE HYDROCHLORIDE [Concomitant]
  13. VITAMINS (UNSPECIFIED) [Concomitant]
  14. NORETHINDRONE [Concomitant]

REACTIONS (1)
  - Wound infection [Unknown]
